FAERS Safety Report 5614063-9 (Version None)
Quarter: 2008Q1

REPORT INFORMATION
  Report Type: 
  Country: None (occurrence: None)
  Receive Date: 20080205
  Receipt Date: 20080124
  Transmission Date: 20080703
  Serious: Yes (Death)
  Sender: FDA-Public Use
  Company Number: ID-ROCHE-543076

PATIENT
  Age: 30 Year
  Sex: Male
  Weight: 85 kg

DRUGS (4)
  1. OSELTAMIVIR [Suspect]
     Indication: AVIAN INFLUENZA
     Dosage: DOSE-BLINDED.
     Route: 065
     Dates: end: 20080124
  2. CEFEPIME [Concomitant]
     Indication: INFECTION
     Route: 042
     Dates: start: 20080121, end: 20080124
  3. IMMUNE GLOBULIN INTRAVENOUS (HUMAN) [Concomitant]
     Indication: IMMUNE ENHANCEMENT THERAPY
     Route: 042
     Dates: start: 20080122, end: 20080123
  4. DOPAMINE HYDROCHLORIDE [Concomitant]
     Indication: HYPOTENSION
     Route: 042
     Dates: start: 20080121, end: 20080124

REACTIONS (2)
  - MULTI-ORGAN FAILURE [None]
  - NO THERAPEUTIC RESPONSE [None]
